FAERS Safety Report 21744841 (Version 4)
Quarter: 2023Q4

REPORT INFORMATION
  Report Type: Spontaneous
  Country: FR (occurrence: FR)
  Receive Date: 20221219
  Receipt Date: 20231031
  Transmission Date: 20240109
  Serious: Yes (Life-Threatening, Hospitalization)
  Sender: FDA-Public Use
  Company Number: FR-JNJFOC-20221239097

PATIENT
  Age: 65 Year
  Sex: Male
  Weight: 97 kg

DRUGS (13)
  1. YONDELIS [Suspect]
     Active Substance: TRABECTEDIN
     Indication: Myxoid liposarcoma
     Dosage: CYCLE 1
     Route: 042
     Dates: start: 20220818, end: 20220818
  2. YONDELIS [Suspect]
     Active Substance: TRABECTEDIN
     Dosage: CYCLE 2
     Route: 042
     Dates: start: 20220919, end: 20220919
  3. OMEPRAZOLE MAGNESIUM [Concomitant]
     Active Substance: OMEPRAZOLE MAGNESIUM
  4. CRESTOR [Concomitant]
     Active Substance: ROSUVASTATIN CALCIUM
  5. KARDEGIC [Concomitant]
     Active Substance: ASPIRIN DL-LYSINE
  6. PERINDOPRIL ARGININE [Concomitant]
     Active Substance: PERINDOPRIL ARGININE
  7. ELIQUIS [Concomitant]
     Active Substance: APIXABAN
  8. ESIDREX [Concomitant]
     Active Substance: HYDROCHLOROTHIAZIDE
  9. METFORMIN HYDROCHLORIDE [Concomitant]
     Active Substance: METFORMIN HYDROCHLORIDE
  10. GLIMEPIRIDE [Concomitant]
     Active Substance: GLIMEPIRIDE
  11. SEMAGLUTIDE [Concomitant]
     Active Substance: SEMAGLUTIDE
  12. BISOPROLOL FUMARATE [Concomitant]
     Active Substance: BISOPROLOL FUMARATE
  13. LEVOTHYROXINE [Concomitant]
     Active Substance: LEVOTHYROXINE

REACTIONS (2)
  - Cardiogenic shock [Recovered/Resolved]
  - Respiratory failure [Recovered/Resolved]

NARRATIVE: CASE EVENT DATE: 20220819
